FAERS Safety Report 18824462 (Version 7)
Quarter: 2021Q2

REPORT INFORMATION
  Report Type: Report from Study
  Country: US (occurrence: US)
  Receive Date: 20210202
  Receipt Date: 20210608
  Transmission Date: 20210717
  Serious: Yes (Death, Hospitalization)
  Sender: FDA-Public Use
  Company Number: US-PFIZER INC-2021074048

PATIENT
  Age: 69 Year
  Sex: Male
  Weight: 128 kg

DRUGS (12)
  1. HYDROCHLOROTHIAZIDE. [Concomitant]
     Active Substance: HYDROCHLOROTHIAZIDE
     Dosage: UNK UNK, UNKNOWN FREQ.
     Route: 065
     Dates: start: 2010
  2. MELATONIN [Concomitant]
     Active Substance: MELATONIN
     Dosage: UNK UNK, UNKNOWN FREQ.
     Route: 065
     Dates: start: 20200928
  3. ATORVASTATIN [Concomitant]
     Active Substance: ATORVASTATIN
     Dosage: UNK UNK, UNKNOWN FREQ.
     Route: 065
     Dates: start: 2010
  4. ECOTRIN [Concomitant]
     Active Substance: ASPIRIN
     Dosage: UNK UNK, UNKNOWN FREQ.
     Route: 065
     Dates: start: 2010
  5. DOCETAXEL. [Suspect]
     Active Substance: DOCETAXEL
     Dosage: 163 MG EVERY 3 WEEKS
     Route: 042
     Dates: start: 20210126, end: 20210309
  6. DOCETAXEL. [Suspect]
     Active Substance: DOCETAXEL
     Dosage: 55 MG/M2
     Route: 042
     Dates: start: 20210309
  7. LUPRON [Suspect]
     Active Substance: LEUPROLIDE ACETATE
     Indication: PANCREATIC CARCINOMA METASTATIC
     Dosage: 45 MG, EVERY 6 MONTHS
     Route: 030
     Dates: start: 20201021, end: 20201118
  8. ALTACE [Concomitant]
     Active Substance: RAMIPRIL
     Dosage: UNK UNK, UNKNOWN FREQ.
     Route: 065
     Dates: start: 2010
  9. ADVIL PM [Concomitant]
     Active Substance: DIPHENHYDRAMINE CITRATE\IBUPROFEN
     Dosage: UNK UNK, UNKNOWN FREQ.
     Route: 065
     Dates: start: 2010
  10. ENZALUTAMIDE [Suspect]
     Active Substance: ENZALUTAMIDE
     Indication: PANCREATIC CARCINOMA METASTATIC
     Dosage: 160 MG, 1X/DAY
     Route: 048
     Dates: start: 20201209
  11. ENZALUTAMIDE [Suspect]
     Active Substance: ENZALUTAMIDE
     Dosage: 120 MG, 1X/DAY
     Route: 048
     Dates: start: 20210121, end: 20210325
  12. DOCETAXEL. [Suspect]
     Active Substance: DOCETAXEL
     Indication: PANCREATIC CARCINOMA METASTATIC
     Dosage: 188 MG (75 MG/M2 ?129 MG), EVERY 3 WEEKS (EVERY 21 DAYS)
     Route: 042
     Dates: start: 20201209

REACTIONS (6)
  - Dehydration [Recovered/Resolved]
  - Encephalopathy [Recovering/Resolving]
  - Multiple organ dysfunction syndrome [Recovering/Resolving]
  - Pneumoperitoneum [Fatal]
  - Sepsis [Recovered/Resolved]
  - Colitis [Fatal]

NARRATIVE: CASE EVENT DATE: 20210118
